FAERS Safety Report 18399494 (Version 1)
Quarter: 2020Q4

REPORT INFORMATION
  Report Type: Report from Study
  Country: US (occurrence: US)
  Receive Date: 20201019
  Receipt Date: 20201019
  Transmission Date: 20210114
  Serious: Yes (Death, Other)
  Sender: FDA-Public Use
  Company Number: US-PFIZER INC-2020301355

PATIENT
  Age: 65 Year
  Sex: Female

DRUGS (3)
  1. IBRANCE [Suspect]
     Active Substance: PALBOCICLIB
     Indication: BREAST CANCER FEMALE
     Dosage: 125 MG DAILY, CYCLIC (1 TABLET, 21 DAYS ON, OFF 7 DAYS)
     Route: 048
     Dates: start: 20200728
  2. IBRANCE [Suspect]
     Active Substance: PALBOCICLIB
     Dosage: 75 MG, CYCLIC (DAILY, 21 DAYS ON, OFF 7 DAYS)
     Route: 048
     Dates: start: 202009
  3. ANASTROZOLE. [Concomitant]
     Active Substance: ANASTROZOLE
     Dosage: UNK, DAILY

REACTIONS (10)
  - Contusion [Unknown]
  - Somnolence [Unknown]
  - Stomatitis [Not Recovered/Not Resolved]
  - Epistaxis [Unknown]
  - Death [Fatal]
  - Mucosal disorder [Unknown]
  - White blood cell count decreased [Unknown]
  - Platelet count decreased [Unknown]
  - Fatigue [Unknown]
  - Nausea [Not Recovered/Not Resolved]

NARRATIVE: CASE EVENT DATE: 2020
